FAERS Safety Report 4735561-6 (Version None)
Quarter: 2005Q3

REPORT INFORMATION
  Report Type: 
  Country: None (occurrence: None)
  Receive Date: 20050803
  Receipt Date: 20050726
  Transmission Date: 20060218
  Serious: Yes (Hospitalization)
  Sender: FDA-Public Use
  Company Number: TPA2005A00837

PATIENT
  Age: 56 Year
  Sex: Female
  Weight: 113.3993 kg

DRUGS (5)
  1. ACTOS [Suspect]
     Indication: DIABETES MELLITUS
     Dosage: 2 IN 1 D, PER ORAL
     Route: 048
     Dates: start: 20010101, end: 20020501
  2. ZAROXOLYN [Suspect]
     Indication: CARDIAC FAILURE CONGESTIVE
     Dosage: 5 MG
     Dates: start: 20011001
  3. FUROSEMIDE (FUROSEMIDE) [Concomitant]
  4. POTASSIUM CHLORIDE [Concomitant]
  5. ENALAPRIL MALEATE [Concomitant]

REACTIONS (11)
  - ANURIA [None]
  - ASTHENIA [None]
  - BLOOD GLUCOSE DECREASED [None]
  - BLOOD PRESSURE DECREASED [None]
  - BLOOD PRESSURE INCREASED [None]
  - BLOOD URINE PRESENT [None]
  - CARDIAC FAILURE CONGESTIVE [None]
  - DIZZINESS [None]
  - DYSPHEMIA [None]
  - HYPERHIDROSIS [None]
  - MOBILITY DECREASED [None]
